FAERS Safety Report 4925893-0 (Version None)
Quarter: 2006Q1

REPORT INFORMATION
  Report Type: 
  Country: None (occurrence: None)
  Receive Date: 20060228
  Receipt Date: 20050411
  Transmission Date: 20060701
  Serious: No
  Sender: FDA-Public Use
  Company Number: US-GLAXOSMITHKLINE-A0553601A

PATIENT
  Age: 33 Year
  Sex: Female

DRUGS (3)
  1. LAMICTAL [Suspect]
     Indication: MIGRAINE PROPHYLAXIS
     Dosage: 50MG PER DAY
     Route: 048
     Dates: start: 20050402, end: 20050411
  2. TOPAMAX [Concomitant]
  3. BIRTH CONTROL PILL [Concomitant]

REACTIONS (2)
  - LETHARGY [None]
  - RASH [None]
